FAERS Safety Report 9892631 (Version 2)
Quarter: 2014Q2

REPORT INFORMATION
  Report Type: Report from Study
  Country: ZA (occurrence: ZA)
  Receive Date: 20140212
  Receipt Date: 20140425
  Transmission Date: 20141212
  Serious: Yes (Death, Other)
  Sender: FDA-Public Use
  Company Number: ZA-GILEAD-2014-0093985

PATIENT
  Age: 35 Year
  Sex: Female
  Weight: 101.9 kg

DRUGS (5)
  1. EMTRICITABINE/TENOFOVIR DISOPROXIL FUMARATE [Suspect]
     Indication: HIV INFECTION
     Dosage: 1 DF, QD
     Route: 048
     Dates: start: 20100303
  2. EFAVIRENZ [Suspect]
     Indication: HIV INFECTION
     Dosage: 600 MG, QD
     Route: 048
     Dates: start: 20100303
  3. IRON [Concomitant]
     Indication: ANAEMIA
     Dosage: 1 DF, TID
     Route: 065
     Dates: start: 201311
  4. VITAMIN C                          /00008001/ [Concomitant]
     Indication: ANAEMIA
     Dosage: 1 DF, TID
     Route: 065
     Dates: start: 201311
  5. FOLATE [Concomitant]
     Indication: ANAEMIA
     Dosage: 1 DF, TID
     Route: 065
     Dates: start: 201311

REACTIONS (1)
  - Foetal death [Fatal]
